FAERS Safety Report 9786284 (Version 1)
Quarter: 2013Q4

REPORT INFORMATION
  Report Type: Spontaneous
  Country: US (occurrence: None)
  Receive Date: 20131223
  Receipt Date: 20131223
  Transmission Date: 20140711
  Serious: Yes (Other)
  Sender: FDA-Public Use
  Company Number: EUS-2012-00498

PATIENT
  Age: 8 Year
  Sex: Female

DRUGS (7)
  1. ASPARAGINASE (UNSPECIFIED) (ASPARAGINASE) (UNKNOWN) [Suspect]
     Indication: ACUTE LYMPHOCYTIC LEUKAEMIA
  2. DAUNORUBICIN [Concomitant]
  3. VINCRISTINE [Concomitant]
  4. PREDNISOLONE [Concomitant]
  5. MERCAPTOPURINE [Concomitant]
  6. METHOTREXATE [Concomitant]
  7. SOMATOSTATIN [Concomitant]

REACTIONS (1)
  - Pancreatitis acute [None]
